FAERS Safety Report 10583887 (Version 1)
Quarter: 2014Q4

REPORT INFORMATION
  Report Type: Spontaneous
  Country: US (occurrence: None)
  Receive Date: 20141113
  Receipt Date: 20141113
  Transmission Date: 20150529
  Serious: No
  Sender: FDA-Public Use
  Company Number: None

PATIENT
  Age: 27 Year
  Sex: Male
  Weight: 79.38 kg

DRUGS (1)
  1. AMPHETAMINE [Suspect]
     Active Substance: AMPHETAMINE
     Indication: ATTENTION DEFICIT/HYPERACTIVITY DISORDER
     Dosage: 1 PILL
     Route: 048
     Dates: start: 20140901, end: 20141111

REACTIONS (9)
  - Product substitution issue [None]
  - Therapeutic response changed [None]
  - Nausea [None]
  - Dehydration [None]
  - Irritability [None]
  - Headache [None]
  - Disturbance in attention [None]
  - Product colour issue [None]
  - Depressed mood [None]

NARRATIVE: CASE EVENT DATE: 20141015
